FAERS Safety Report 7736156-2 (Version None)
Quarter: 2011Q3

REPORT INFORMATION
  Report Type: 
  Country: None (occurrence: None)
  Receive Date: 20110908
  Receipt Date: 20110829
  Transmission Date: 20111222
  Serious: Yes (Hospitalization)
  Sender: FDA-Public Use
  Company Number: US-UCBSA-038290

PATIENT
  Sex: Male
  Weight: 55.9 kg

DRUGS (12)
  1. CIMZIA [Suspect]
     Indication: CROHN'S DISEASE
     Dosage: DOSAGE:200MG ONCE EVERY TWO WEEKS.
     Route: 058
     Dates: start: 20090101, end: 20110718
  2. METHADONE HCL [Concomitant]
     Indication: PAIN
     Route: 048
  3. METRONIDAZOLE [Concomitant]
     Indication: CROHN'S DISEASE
     Route: 048
  4. PRAMIPEXOLE [Concomitant]
     Indication: RESTLESS LEGS SYNDROME
     Dosage: 1 AT HS
     Route: 048
     Dates: start: 20100101
  5. OXYCODONE HCL [Concomitant]
     Indication: PAIN
     Route: 048
     Dates: start: 20110730
  6. TYLENOL-500 [Concomitant]
     Indication: PAIN
     Dosage: PRN
     Route: 048
  7. PREVACID [Concomitant]
     Indication: GASTROOESOPHAGEAL REFLUX DISEASE
     Route: 048
  8. FOLIC ACID [Concomitant]
     Indication: MINERAL SUPPLEMENTATION
     Route: 048
  9. LORAZEPAM [Concomitant]
     Indication: INSOMNIA
     Route: 048
  10. MEDICAL MARIJUANA [Concomitant]
     Indication: NAUSEA
     Dosage: PRN
     Route: 048
  11. OXYCODONE HCL [Concomitant]
     Dosage: EVERY 8 HOURS PRN
     Route: 048
  12. PRAZOSIN HCL [Concomitant]
     Indication: INSOMNIA
     Dosage: ONE HS
     Route: 048

REACTIONS (2)
  - CROHN'S DISEASE [None]
  - INFECTION [None]
